FAERS Safety Report 7025396-6 (Version None)
Quarter: 2010Q4

REPORT INFORMATION
  Report Type: 
  Country: None (occurrence: None)
  Receive Date: 20101001
  Receipt Date: 20100922
  Transmission Date: 20110411
  Serious: Yes (Other)
  Sender: FDA-Public Use
  Company Number: PHHY2010DE63325

PATIENT
  Sex: Male

DRUGS (3)
  1. LEPONEX [Suspect]
     Dosage: 375 MG/DAY
  2. LEPONEX [Suspect]
     Dosage: 300 MG/DAY
  3. RISPERIDONE [Concomitant]
     Dosage: 7 MG/D

REACTIONS (4)
  - ASPIRATION [None]
  - LUNG INFILTRATION [None]
  - OBSESSIVE-COMPULSIVE DISORDER [None]
  - SALIVARY HYPERSECRETION [None]
